FAERS Safety Report 22952191 (Version 2)
Quarter: 2023Q4

REPORT INFORMATION
  Report Type: Report from Study
  Country: EG (occurrence: EG)
  Receive Date: 20230918
  Receipt Date: 20231116
  Transmission Date: 20240110
  Serious: Yes (Other)
  Sender: FDA-Public Use
  Company Number: EG-SANDOZ-NVSC2023EG067510

PATIENT
  Age: 9 Year
  Sex: Female

DRUGS (2)
  1. OMNITROPE [Suspect]
     Active Substance: SOMATROPIN
     Indication: Growth hormone deficiency
     Dosage: 1 MG, QD
     Route: 058
     Dates: start: 20220527
  2. OMNITROPE [Suspect]
     Active Substance: SOMATROPIN
     Dosage: 1.3 MG, QD (INCREASED TO 1.3 MG/DAY DUE TO THE NORMAL GROWTH)
     Route: 058

REACTIONS (5)
  - Growth retardation [Not Recovered/Not Resolved]
  - Drug dose omission by device [Not Recovered/Not Resolved]
  - Product preparation error [Recovered/Resolved]
  - Product dosage form issue [Unknown]
  - Manufacturing issue [Unknown]

NARRATIVE: CASE EVENT DATE: 20220527
